FAERS Safety Report 9913251 (Version 1)
Quarter: 2014Q1

REPORT INFORMATION
  Report Type: Spontaneous
  Country: US (occurrence: None)
  Receive Date: 20140219
  Receipt Date: 20140219
  Transmission Date: 20141002
  Serious: Yes (Other)
  Sender: FDA-Public Use
  Company Number: None

PATIENT
  Sex: Female
  Weight: 93.44 kg

DRUGS (1)
  1. LEVOTHYROXINE [Suspect]
     Route: 048
     Dates: start: 2011, end: 2014

REACTIONS (3)
  - Chest discomfort [None]
  - Headache [None]
  - Sensation of pressure [None]
